FAERS Safety Report 11081300 (Version 1)
Quarter: 2015Q2

REPORT INFORMATION
  Report Type: Report from Study
  Country: US (occurrence: US)
  Receive Date: 20150501
  Receipt Date: 20150501
  Transmission Date: 20150821
  Serious: No
  Sender: FDA-Public Use
  Company Number: US-ABBVIE-14P-163-1262335-00

PATIENT
  Age: 43 Year
  Sex: Male
  Weight: 83.08 kg

DRUGS (2)
  1. CREON [Suspect]
     Active Substance: PANCRELIPASE AMYLASE\PANCRELIPASE LIPASE\PANCRELIPASE PROTEASE
     Indication: PANCREATIC INSUFFICIENCY
     Dosage: 2 CAPSULES WITH EVERY MEAL; 1 CAPSULE WITH EVERY SNACK
     Route: 048
     Dates: start: 20140618, end: 20140710
  2. CREON [Suspect]
     Active Substance: PANCRELIPASE AMYLASE\PANCRELIPASE LIPASE\PANCRELIPASE PROTEASE
     Dosage: 1 CAPSULE WITH EVERY MEAL; 1 CAPSULE WITH EVERY SNACK
     Route: 048
     Dates: start: 20140710

REACTIONS (3)
  - Incorrect dose administered [Not Recovered/Not Resolved]
  - Abdominal pain [Not Recovered/Not Resolved]
  - Hunger [Not Recovered/Not Resolved]

NARRATIVE: CASE EVENT DATE: 20140710
